FAERS Safety Report 15233654 (Version 1)
Quarter: 2018Q3

REPORT INFORMATION
  Report Type: Spontaneous
  Country: US (occurrence: US)
  Receive Date: 20180709
  Receipt Date: 20180709
  Transmission Date: 20181010
  Serious: No
  Sender: FDA-Public Use
  Company Number: None

PATIENT

DRUGS (2)
  1. SOVALDI [Suspect]
     Active Substance: SOFOSBUVIR
  2. DAKLINZA [Concomitant]
     Active Substance: DACLATASVIR

REACTIONS (1)
  - Off label use [None]

NARRATIVE: CASE EVENT DATE: 20180709
